FAERS Safety Report 5896221-1 (Version None)
Quarter: 2008Q3

REPORT INFORMATION
  Report Type: 
  Country: None (occurrence: None)
  Receive Date: 20080924
  Receipt Date: 20080912
  Transmission Date: 20090109
  Serious: Yes (Life-Threatening, Hospitalization, Other)
  Sender: FDA-Public Use
  Company Number: PL-PFIZER INC-2005159763

PATIENT
  Sex: Female
  Weight: 62 kg

DRUGS (1)
  1. SU-011,248 [Suspect]
     Indication: GASTROINTESTINAL STROMAL TUMOUR
     Dosage: TEXT:50 (UNIT NOT PROVIDED)-FREQ:QD
     Route: 048
     Dates: start: 20051107, end: 20051124

REACTIONS (2)
  - ANAEMIA [None]
  - ASCITES [None]
